FAERS Safety Report 9587587 (Version 1)
Quarter: 2013Q4

REPORT INFORMATION
  Report Type: Spontaneous
  Country: US (occurrence: US)
  Receive Date: 20131003
  Receipt Date: 20131003
  Transmission Date: 20140711
  Serious: No
  Sender: FDA-Public Use
  Company Number: US-MYLANLABS-2013S1018342

PATIENT
  Age: 73 Year
  Sex: Female
  Weight: 87.09 kg

DRUGS (2)
  1. METOPROLOL SUCCINATE EXTENDED-RELEASE TABLETS USP [Suspect]
     Indication: BLOOD PRESSURE INCREASED
     Route: 048
  2. LISINOPRIL [Concomitant]

REACTIONS (1)
  - Dysgeusia [Not Recovered/Not Resolved]
